FAERS Safety Report 8574841-3 (Version None)
Quarter: 2012Q3

REPORT INFORMATION
  Report Type: 
  Country: None (occurrence: None)
  Receive Date: 20120807
  Receipt Date: 20120731
  Transmission Date: 20120928
  Serious: Yes (Other)
  Sender: FDA-Public Use
  Company Number: US-BAYER-2012-079156

PATIENT
  Sex: Female

DRUGS (2)
  1. MIRENA [Suspect]
     Dosage: 20 MCG/24HR, CONT
     Route: 015
     Dates: start: 20071018, end: 20110812
  2. MIRENA [Suspect]
     Dosage: 20 MCG/24HR, CONT
     Route: 015
     Dates: start: 20071010, end: 20071018

REACTIONS (5)
  - DEVICE EXPULSION [None]
  - INJURY [None]
  - DEVICE DISLOCATION [None]
  - PAIN [None]
  - EMOTIONAL DISTRESS [None]
